FAERS Safety Report 23911364 (Version 2)
Quarter: 2024Q2

REPORT INFORMATION
  Report Type: Spontaneous
  Country: CN (occurrence: CN)
  Receive Date: 20240528
  Receipt Date: 20240621
  Transmission Date: 20240716
  Serious: Yes (Life-Threatening)
  Sender: FDA-Public Use
  Company Number: CN-BAYER-2024A076970

PATIENT
  Age: 55 Year
  Sex: Female
  Weight: 59 kg

DRUGS (1)
  1. ULTRAVIST [Suspect]
     Active Substance: IOPROMIDE
     Indication: Computerised tomogram heart
     Dosage: 50 ML, ONCE
     Route: 042
     Dates: start: 20240506, end: 20240506

REACTIONS (7)
  - Anaphylactic shock [Recovering/Resolving]
  - Vomiting [Recovered/Resolved]
  - Eyelid oedema [Recovering/Resolving]
  - Lip oedema [Recovering/Resolving]
  - Pruritus [None]
  - Nausea [Recovered/Resolved]
  - Blood pressure immeasurable [Recovering/Resolving]

NARRATIVE: CASE EVENT DATE: 20240506
